FAERS Safety Report 24084104 (Version 1)
Quarter: 2024Q3

REPORT INFORMATION
  Report Type: Report from Study
  Country: US (occurrence: US)
  Receive Date: 20240712
  Receipt Date: 20240712
  Transmission Date: 20241017
  Serious: No
  Sender: ACADIA PHARMACEUTICALS
  Company Number: US-ACADIA PHARMACEUTICALS INC.-ACA-2024-PIM-002919

PATIENT
  Sex: Male

DRUGS (16)
  1. NUPLAZID [Suspect]
     Active Substance: PIMAVANSERIN TARTRATE
     Indication: Parkinson^s disease
     Dosage: 34 MILLIGRAM, QD
     Route: 048
     Dates: start: 202405, end: 20240619
  2. REFRESH OPTIVE [Concomitant]
     Active Substance: CARBOXYMETHYLCELLULOSE SODIUM\GLYCERIN
  3. AVAPRO [Concomitant]
     Active Substance: IRBESARTAN
  4. VITAMIN C [Concomitant]
     Active Substance: ASCORBIC ACID
  5. PYRIDOXINE [Concomitant]
     Active Substance: PYRIDOXINE
  6. OMEPRAZOLE [Concomitant]
     Active Substance: OMEPRAZOLE
  7. VITAMIN D3 [Concomitant]
     Active Substance: CHOLECALCIFEROL
  8. MINERALS\VITAMINS [Concomitant]
     Active Substance: MINERALS\VITAMINS
  9. VITAMIN B12 [Concomitant]
     Active Substance: CYANOCOBALAMIN
  10. NIACIN [Concomitant]
     Active Substance: NIACIN
  11. FOLIC ACID [Concomitant]
     Active Substance: FOLIC ACID
  12. RYTARY [Concomitant]
     Active Substance: CARBIDOPA\LEVODOPA
  13. AZOLECT [Concomitant]
  14. VITAMIN B1 [VITAMIN B1 NOS] [Concomitant]
  15. IRON [Concomitant]
     Active Substance: IRON
  16. MAGNESIUM [Concomitant]
     Active Substance: MAGNESIUM

REACTIONS (5)
  - Delusion [Unknown]
  - Patient elopement [Unknown]
  - Diplopia [Unknown]
  - Confusional state [Unknown]
  - Hallucination [Unknown]
